FAERS Safety Report 6871223-7 (Version None)
Quarter: 2010Q3

REPORT INFORMATION
  Report Type: 
  Country: None (occurrence: None)
  Receive Date: 20100723
  Receipt Date: 20100712
  Transmission Date: 20110219
  Serious: Yes (Hospitalization, Disabling, Other)
  Sender: FDA-Public Use
  Company Number: US-PFIZER INC-2010044567

PATIENT
  Sex: Female

DRUGS (4)
  1. CHANTIX [Suspect]
     Indication: SMOKING CESSATION THERAPY
     Dosage: UNK
     Dates: start: 20080331, end: 20081101
  2. CLONAZEPAM [Concomitant]
     Indication: ANXIETY
     Dosage: UNK
     Dates: start: 20070101, end: 20090101
  3. CLONAZEPAM [Concomitant]
     Indication: PALPITATIONS
  4. ACIPHEX [Concomitant]
     Indication: GASTROOESOPHAGEAL REFLUX DISEASE
     Dosage: UNK
     Dates: start: 20020101, end: 20090101

REACTIONS (8)
  - ANXIETY [None]
  - DEPRESSION [None]
  - INSOMNIA [None]
  - INTENTIONAL SELF-INJURY [None]
  - MENTAL DISORDER [None]
  - PALPITATIONS [None]
  - PARANOIA [None]
  - SUICIDE ATTEMPT [None]
